FAERS Safety Report 21512320 (Version 1)
Quarter: 2022Q4

REPORT INFORMATION
  Report Type: Spontaneous
  Country: US (occurrence: None)
  Receive Date: 20221027
  Receipt Date: 20221027
  Transmission Date: 20230113
  Serious: No
  Sender: FDA-Public Use
  Company Number: US-Ultragenyx Pharmaceutical Inc.-US-UGNX-22-00447

PATIENT
  Age: 31 Year
  Sex: Male
  Weight: 60 kg

DRUGS (3)
  1. DOJOLVI [Suspect]
     Active Substance: TRIHEPTANOIN
     Indication: Fatty acid oxidation disorder
     Dosage: ONE TABLESPOON OF DOJOLVI DAILY DURING TITRATION
     Dates: start: 20211122
  2. DOJOLVI [Suspect]
     Active Substance: TRIHEPTANOIN
     Dosage: SMALL DOSE, SLOWLY INCREASING
     Route: 048
     Dates: start: 202206, end: 202206
  3. MCT OIL [Concomitant]
     Indication: Product used for unknown indication

REACTIONS (3)
  - Abdominal pain [Recovered/Resolved]
  - Diarrhoea [Recovered/Resolved]
  - Intentional product misuse [Unknown]

NARRATIVE: CASE EVENT DATE: 20220201
